FAERS Safety Report 7525908-X (Version None)
Quarter: 2011Q2

REPORT INFORMATION
  Report Type: 
  Country: None (occurrence: None)
  Receive Date: 20110606
  Receipt Date: 20110525
  Transmission Date: 20111010
  Serious: Yes (Death)
  Sender: FDA-Public Use
  Company Number: B0721821A

PATIENT
  Age: 64 Year
  Sex: Male

DRUGS (1)
  1. ALKERAN [Suspect]
     Indication: MULTIPLE MYELOMA
     Dosage: 220MG CUMULATIVE DOSE
     Route: 048
     Dates: start: 20110318

REACTIONS (16)
  - INTRA-ABDOMINAL HAEMORRHAGE [None]
  - ASPHYXIA [None]
  - MALAISE [None]
  - AGRANULOCYTOSIS [None]
  - HAEMORRHAGIC DISORDER [None]
  - IMMUNODEFICIENCY [None]
  - ACUTE RESPIRATORY FAILURE [None]
  - OVERDOSE [None]
  - DRUG PRESCRIBING ERROR [None]
  - DRUG DISPENSING ERROR [None]
  - PYREXIA [None]
  - VOMITING [None]
  - BONE MARROW FAILURE [None]
  - THROMBOCYTOPENIA [None]
  - PETECHIAE [None]
  - MUSCLE HAEMORRHAGE [None]
